FAERS Safety Report 7389102-8 (Version None)
Quarter: 2011Q2

REPORT INFORMATION
  Report Type: 
  Country: None (occurrence: None)
  Receive Date: 20110401
  Receipt Date: 20110324
  Transmission Date: 20111010
  Serious: Yes (Hospitalization)
  Sender: FDA-Public Use
  Company Number: DE-ROCHE-766540

PATIENT
  Sex: Female
  Weight: 59.4 kg

DRUGS (12)
  1. PANTOPRAZOLE [Concomitant]
     Dates: start: 20110203
  2. CLEXANE [Concomitant]
     Dates: start: 20110203
  3. IMODIUM [Concomitant]
     Dosage: 2 MG AS NECESSARY
     Dates: start: 20110203
  4. FOLINIC ACID [Suspect]
     Dosage: DOSAGE FORM: IV PUSH. DATE OF LAST DOSE PRIOR TO SAE: 16 MARCH 2011
     Route: 042
     Dates: start: 20110203
  5. FLUOROURACIL [Suspect]
     Dosage: FORM: IV INFUSION.  DATE OF LAST DOSE PRIOR TO SAE: 16 FEB 2011
     Route: 042
  6. METOCLOPRAMID [Concomitant]
     Dosage: TRPE, 25-25-25
     Dates: start: 20110203
  7. OXALIPLATIN [Suspect]
     Dosage: DOSAGE FORM: IV INFUSION.  DATE OF LAST DOSE PRIOR TO SAE: 16 MARCH 2011
     Route: 042
     Dates: start: 20110203
  8. GRANISETRON HCL [Concomitant]
     Dosage: 2 MG AS NECESSARY
     Dates: start: 20110203
  9. BEVACIZUMAB [Suspect]
     Dosage: DOSAGE FORM: IV INFUSION.  DATE OF LAST DOSE PRIOR TO SAE: 02 MARCH 2011
     Route: 042
     Dates: start: 20110203, end: 20110316
  10. FLUOROURACIL [Suspect]
     Dosage: FORM IV PUSH.
     Route: 042
     Dates: start: 20110203
  11. DULCOLAX [Concomitant]
     Dosage: AS NECESSARY
     Dates: start: 20110216
  12. MOVIPREP [Concomitant]
     Dosage: 1BTL
     Dates: start: 20110216

REACTIONS (5)
  - CIRCULATORY COLLAPSE [None]
  - LABILE BLOOD PRESSURE [None]
  - DIZZINESS [None]
  - HYPERTENSION [None]
  - HYPOTENSION [None]
